FAERS Safety Report 16938597 (Version 1)
Quarter: 2019Q4

REPORT INFORMATION
  Report Type: Spontaneous
  Country: US (occurrence: US)
  Receive Date: 20191019
  Receipt Date: 20191019
  Transmission Date: 20200122
  Serious: No
  Sender: FDA-Public Use
  Company Number: US-TEVA-2019-US-1126182

PATIENT
  Sex: Female

DRUGS (3)
  1. ATORVASTATIN DR.REDDY^S [Suspect]
     Active Substance: ATORVASTATIN
     Indication: BLOOD CHOLESTEROL INCREASED
     Route: 065
  2. ATORVASTATIN CALCIUM TEVA [Suspect]
     Active Substance: ATORVASTATIN CALCIUM
     Indication: BLOOD CHOLESTEROL INCREASED
     Route: 048
     Dates: start: 201708
  3. ATORVASTATIN DR.REDDY^S [Suspect]
     Active Substance: ATORVASTATIN
     Route: 065
     Dates: start: 2017

REACTIONS (1)
  - Haemangioma [Not Recovered/Not Resolved]

NARRATIVE: CASE EVENT DATE: 2017
